FAERS Safety Report 6211187-2 (Version None)
Quarter: 2009Q2

REPORT INFORMATION
  Report Type: 
  Country: None (occurrence: None)
  Receive Date: 20090602
  Receipt Date: 20090526
  Transmission Date: 20091009
  Serious: Yes (Hospitalization)
  Sender: FDA-Public Use
  Company Number: GB-WYE-H09492709

PATIENT
  Sex: Male
  Weight: 68.9 kg

DRUGS (2)
  1. CMC-544 [Suspect]
     Indication: B-CELL LYMPHOMA
     Route: 042
     Dates: start: 20090414
  2. RITUXIMAB [Suspect]
     Indication: B-CELL LYMPHOMA
     Route: 042
     Dates: start: 20090414

REACTIONS (1)
  - GASTROINTESTINAL HAEMORRHAGE [None]
